FAERS Safety Report 4911692-2 (Version None)
Quarter: 2006Q1

REPORT INFORMATION
  Report Type: 
  Country: None (occurrence: None)
  Receive Date: 20060213
  Receipt Date: 20060203
  Transmission Date: 20060701
  Serious: Yes (Other)
  Sender: FDA-Public Use
  Company Number: 2006017404

PATIENT
  Age: 37 Year
  Sex: Male
  Weight: 88.4514 kg

DRUGS (17)
  1. LIPITOR [Suspect]
     Indication: BLOOD CHOLESTEROL
     Dosage: 10 MG (10 MG, 1 IN 1 D), ORAL
     Route: 048
     Dates: start: 19960101
  2. PREDNISONE TAB [Suspect]
     Indication: ARTHROPOD STING
     Dosage: 80 MG
     Dates: start: 20050901, end: 20050901
  3. POTASSIUM (POTASSIUM) [Suspect]
     Indication: BLOOD POTASSIUM ABNORMAL
     Dosage: INTRAVENOUS
     Route: 042
     Dates: start: 20050901, end: 20050901
  4. PLAVIX [Concomitant]
  5. ACCOLATE [Concomitant]
  6. HYDROCODONE BITARTRATE [Concomitant]
  7. PERCOCET [Concomitant]
  8. MORPHINE SULFATE [Concomitant]
  9. ECOTRIN (ACETYLSALICYLIC ACID) [Concomitant]
  10. PAXIL [Concomitant]
  11. PROTONIX [Concomitant]
  12. BACLOFEN [Concomitant]
  13. CLONAZEPAM [Concomitant]
  14. LISINOPRIL [Concomitant]
  15. TRAZODONE [Concomitant]
  16. LOPRESSOR [Concomitant]
  17. REQUIP [Concomitant]

REACTIONS (16)
  - ARTHROPOD STING [None]
  - BACK INJURY [None]
  - BLOOD POTASSIUM DECREASED [None]
  - DIFFICULTY IN WALKING [None]
  - FEELING ABNORMAL [None]
  - HEADACHE [None]
  - HYPOTONIA [None]
  - INCORRECT DRUG ADMINISTRATION DURATION [None]
  - INTERVERTEBRAL DISC OPERATION [None]
  - LIMB INJURY [None]
  - MUSCLE SPASMS [None]
  - MYOCARDIAL INFARCTION [None]
  - NECK INJURY [None]
  - NERVE INJURY [None]
  - OVERDOSE [None]
  - PAIN [None]
